FAERS Safety Report 9220912 (Version 1)
Quarter: 2013Q2

REPORT INFORMATION
  Report Type: Spontaneous
  Country: US (occurrence: US)
  Receive Date: 20130409
  Receipt Date: 20130409
  Transmission Date: 20140414
  Serious: Yes (Other)
  Sender: FDA-Public Use
  Company Number: US-TEVA-396554USA

PATIENT
  Sex: Female

DRUGS (8)
  1. TAMOXIFEN [Suspect]
     Indication: BREAST CANCER
  2. AROMASIN [Suspect]
     Indication: BREAST CANCER
     Dates: start: 2012, end: 2012
  3. AROMASIN [Suspect]
     Dates: start: 2013
  4. UNSPECIFIED INGREDIENT [Suspect]
     Indication: BREAST CANCER
  5. ZOLOFT [Concomitant]
     Indication: DEPRESSION
  6. LORTAB [Concomitant]
  7. NEURONTIN [Concomitant]
     Indication: FIBROMYALGIA
  8. UNKNOWN WATER PILL [Concomitant]

REACTIONS (4)
  - Diabetes mellitus [Unknown]
  - Arthralgia [Not Recovered/Not Resolved]
  - Joint stiffness [Not Recovered/Not Resolved]
  - Pain [Unknown]
